FAERS Safety Report 9482458 (Version 2)
Quarter: 2013Q3

REPORT INFORMATION
  Report Type: Spontaneous
  Country: AU (occurrence: AU)
  Receive Date: 20130828
  Receipt Date: 20130828
  Transmission Date: 20140515
  Serious: Yes (Other)
  Sender: FDA-Public Use
  Company Number: AU-PFIZER INC-2013228151

PATIENT
  Age: 69 Year
  Sex: Female

DRUGS (11)
  1. LYRICA [Suspect]
     Indication: NEURALGIA
     Dosage: 75 MG, 2X/DAY
     Route: 048
     Dates: start: 20130729, end: 20130730
  2. ASPIRIN [Concomitant]
     Dosage: 100 MG, MORNING
     Route: 048
  3. PARACETAMOL [Concomitant]
     Dosage: 1 G, 4X/DAY
     Route: 048
  4. OXYCODONE SR [Concomitant]
     Dosage: 30 MG, 2X/DAY
     Route: 048
  5. MADOPAR [Concomitant]
     Dosage: 100/25, 4X/DAY
     Route: 048
  6. SANDOMIGRAN [Concomitant]
     Dosage: 1.5 G, NIGHTLY
     Route: 048
  7. PRAMIPEXOLE [Concomitant]
     Dosage: 2.25 MG, NIGHTLY
     Route: 048
  8. CANDESARTAN [Concomitant]
     Dosage: 16 MG, MORNING
     Route: 048
  9. RABEPRAZOLE [Concomitant]
     Dosage: 20 MG, MORNING
     Route: 048
  10. ROSUVASTATIN [Concomitant]
     Dosage: 5 MG, MORNING
     Route: 048
  11. MAGNESIUM ASPARTATE [Concomitant]
     Dosage: 1 G, 2X/DAY
     Route: 048

REACTIONS (2)
  - Hallucination, visual [Recovered/Resolved]
  - Emotional distress [Recovered/Resolved]
